FAERS Safety Report 9546925 (Version 1)
Quarter: 2013Q3

REPORT INFORMATION
  Report Type: Spontaneous
  Country: US (occurrence: US)
  Receive Date: 20130924
  Receipt Date: 20130924
  Transmission Date: 20140515
  Serious: No
  Sender: FDA-Public Use
  Company Number: US-009507513-1309USA009230

PATIENT
  Age: 46 Year
  Sex: Male

DRUGS (1)
  1. PEGINTRON [Suspect]
     Indication: HEPATITIS C
     Dosage: REDIPEN
     Dates: start: 20130916

REACTIONS (8)
  - Pyrexia [Unknown]
  - Skin warm [Unknown]
  - Vomiting [Unknown]
  - Hyperhidrosis [Unknown]
  - Pain of skin [Unknown]
  - Malaise [Unknown]
  - Influenza like illness [Unknown]
  - Rash generalised [Unknown]
